FAERS Safety Report 15719619 (Version 2)
Quarter: 2018Q4

REPORT INFORMATION
  Report Type: Spontaneous
  Country: US (occurrence: US)
  Receive Date: 20181213
  Receipt Date: 20181227
  Transmission Date: 20190205
  Serious: Yes (Hospitalization, Other)
  Sender: FDA-Public Use
  Company Number: US-TEVA-2018-US-984665

PATIENT
  Sex: Female

DRUGS (2)
  1. LAMOTRIGINE TEVA [Concomitant]
     Active Substance: LAMOTRIGINE
     Indication: DEPRESSION
  2. LOSARTAN TABLETS [Suspect]
     Active Substance: LOSARTAN
     Indication: HYPERTENSION
     Dates: start: 2001

REACTIONS (5)
  - Surgery [Unknown]
  - Gait disturbance [Recovered/Resolved]
  - Hypotension [Unknown]
  - Dyspnoea [Recovered/Resolved]
  - Wrong technique in product usage process [Unknown]

NARRATIVE: CASE EVENT DATE: 2001
